FAERS Safety Report 5091067-9 (Version None)
Quarter: 2006Q3

REPORT INFORMATION
  Report Type: 
  Country: None (occurrence: None)
  Receive Date: 20060829
  Receipt Date: 20060414
  Transmission Date: 20061208
  Serious: Yes (Other)
  Sender: FDA-Public Use
  Company Number: PHEH2006US04980

PATIENT
  Age: 40 Year
  Sex: Male

DRUGS (8)
  1. TEGRETOL [Suspect]
     Indication: NEUROPATHY PERIPHERAL
     Dosage: UNK, UNK
     Route: 048
  2. FLONASE [Concomitant]
  3. ALLEGRA [Concomitant]
  4. CARBAMAZEPINE [Suspect]
     Dosage: 200 MG, BID
     Route: 048
  5. LISINOPRIL [Suspect]
  6. HYDROCHLOROTHIAZIDE [Concomitant]
     Indication: SWELLING
     Dosage: 25 MG, QD
     Route: 048
  7. FABRAZYME [Concomitant]
     Indication: FABRY'S DISEASE
     Dosage: 1MG/KG, Q 2 WEEKS
     Route: 042
  8. MAXIFED [Concomitant]
     Indication: SEASONAL ALLERGY
     Dosage: 1 TAB, QD PRN
     Route: 048

REACTIONS (15)
  - ABDOMINAL PAIN [None]
  - AMNESIA [None]
  - ANGIONEUROTIC OEDEMA [None]
  - ARTHRALGIA [None]
  - DEPRESSION [None]
  - DIARRHOEA [None]
  - DIZZINESS [None]
  - DYSPNOEA [None]
  - HYPOACUSIS [None]
  - NEURALGIA [None]
  - OEDEMA PERIPHERAL [None]
  - SOMNOLENCE [None]
  - SPERM COUNT ZERO [None]
  - TINNITUS [None]
  - VISUAL ACUITY REDUCED [None]
